FAERS Safety Report 15922531 (Version 2)
Quarter: 2019Q1

REPORT INFORMATION
  Report Type: Spontaneous
  Country: US (occurrence: US)
  Receive Date: 20190205
  Receipt Date: 20190219
  Transmission Date: 20190417
  Serious: No
  Sender: FDA-Public Use
  Company Number: US-ALLERGAN-1811270US

PATIENT
  Age: 58 Year
  Sex: Female

DRUGS (2)
  1. BOTOX [Suspect]
     Active Substance: ONABOTULINUMTOXINA
     Indication: MIGRAINE
     Dosage: 155 UNITS, SINGLE
     Route: 030
     Dates: start: 20180208, end: 20180208
  2. INDOMETHACIN. [Concomitant]
     Active Substance: INDOMETHACIN
     Indication: MIGRAINE
     Dosage: UNK, QD
     Route: 048
     Dates: start: 20180227

REACTIONS (6)
  - Dizziness [Unknown]
  - Injection site pain [Unknown]
  - Off label use [Unknown]
  - Drug ineffective [Unknown]
  - Headache [Unknown]
  - Anxiety [Unknown]
